FAERS Safety Report 22049273 (Version 1)
Quarter: 2023Q1

REPORT INFORMATION
  Report Type: Spontaneous
  Country: US (occurrence: None)
  Receive Date: 20230227
  Receipt Date: 20230227
  Transmission Date: 20230418
  Serious: Yes (Other)
  Sender: FDA-Public Use
  Company Number: None

PATIENT
  Age: 29 Year
  Sex: Female
  Weight: 87.63 kg

DRUGS (3)
  1. PALIPERIDONE [Suspect]
     Active Substance: PALIPERIDONE
     Indication: Bipolar disorder
     Dates: start: 20171026, end: 201808
  2. PALIPERIDONE [Suspect]
     Active Substance: PALIPERIDONE
     Indication: Stress
  3. PALIPERIDONE [Suspect]
     Active Substance: PALIPERIDONE
     Indication: Injury

REACTIONS (1)
  - Drug ineffective [None]
